FAERS Safety Report 9576247 (Version 1)
Quarter: 2013Q4

REPORT INFORMATION
  Report Type: Spontaneous
  Country: US (occurrence: US)
  Receive Date: 20131001
  Receipt Date: 20131001
  Transmission Date: 20140711
  Serious: No
  Sender: FDA-Public Use
  Company Number: US-AMGEN-USASP2013001657

PATIENT
  Sex: Female
  Weight: 69.84 kg

DRUGS (10)
  1. ENBREL [Suspect]
     Indication: RHEUMATOID ARTHRITIS
     Dosage: 50 MG, QWK
     Route: 058
  2. CYMBALTA [Concomitant]
     Dosage: 20 MG, UNK
  3. PHENERGAN                          /00033001/ [Concomitant]
     Dosage: 25 MG, UNK
  4. PANTOPRAZOLE [Concomitant]
     Dosage: 20 MG, UNK
  5. AZATHIOPRINE [Concomitant]
     Dosage: 50 MG, UNK
  6. TRAMADOL [Concomitant]
     Dosage: 50 MG, UNK
  7. SIMVASTATIN [Concomitant]
     Dosage: 10 MG, UNK
  8. IBUPROFEN [Concomitant]
     Dosage: 200 MG, UNK
  9. ZANAFLEX [Concomitant]
     Dosage: 2 MG, UNK
  10. PERCOCET                           /00446701/ [Concomitant]
     Dosage: 2.5-325 UNK

REACTIONS (1)
  - Therapeutic response decreased [Unknown]
